FAERS Safety Report 10447268 (Version 2)
Quarter: 2014Q4

REPORT INFORMATION
  Report Type: Spontaneous
  Country: DE (occurrence: DE)
  Receive Date: 20140911
  Receipt Date: 20141114
  Transmission Date: 20150528
  Serious: Yes (Hospitalization)
  Sender: FDA-Public Use
  Company Number: DE-ABBVIE-14P-062-1282553-00

PATIENT
  Sex: Female
  Weight: 58 kg

DRUGS (2)
  1. KREON 25.000 [Suspect]
     Active Substance: PANCRELIPASE
     Indication: PRODUCT USED FOR UNKNOWN INDICATION
     Dosage: 3 CAPSULE; CAPSULES TAKEN 20 MINUTES BEFORE MEALS
     Route: 065
     Dates: start: 2008, end: 2014
  2. KREON 25.000 [Suspect]
     Active Substance: PANCRELIPASE
     Dosage: WITH MEALS AND WITH ADJUSTED DOSING
     Route: 065
     Dates: start: 2014

REACTIONS (6)
  - Hepatitis [Unknown]
  - Gastritis [Unknown]
  - Abdominal pain [Unknown]
  - Pancreatitis [Unknown]
  - Gastrointestinal inflammation [Unknown]
  - Chills [Unknown]

NARRATIVE: CASE EVENT DATE: 2008
